FAERS Safety Report 5353135-3 (Version None)
Quarter: 2007Q2

REPORT INFORMATION
  Report Type: 
  Country: None (occurrence: None)
  Receive Date: 20070611
  Receipt Date: 20070605
  Transmission Date: 20071010
  Serious: Yes (Other)
  Sender: FDA-Public Use
  Company Number: FR-GENENTECH-242472

PATIENT
  Sex: Female
  Weight: 106 kg

DRUGS (2)
  1. BLINDED RANIBIZUMAB [Suspect]
     Indication: MACULAR DEGENERATION
     Dates: start: 20061003
  2. BLINDED SHAM INJECTION [Suspect]
     Indication: MACULAR DEGENERATION
     Dates: start: 20061003

REACTIONS (1)
  - RETINAL ISCHAEMIA [None]
